FAERS Safety Report 9816032 (Version 2)
Quarter: 2014Q1

REPORT INFORMATION
  Report Type: Spontaneous
  Country: CA (occurrence: CA)
  Receive Date: 20140114
  Receipt Date: 20140129
  Transmission Date: 20141002
  Serious: Yes (Other)
  Sender: FDA-Public Use
  Company Number: JP-JHP PHARMACEUTICALS, LLC-JHP201300811

PATIENT
  Age: 35 Year
  Sex: Female
  Weight: 66 kg

DRUGS (14)
  1. PITOCIN [Suspect]
     Indication: UTERINE HYPOTONUS
     Dosage: 20 IU/L, INFUSION AT A RATE OF 0.3 U/MIN (20 UNITS TOTAL OVER 1 HOUR)
     Route: 042
  2. PITOCIN [Suspect]
     Dosage: 20 UNITS OVER 6 HOURS
     Route: 042
  3. PITOCIN [Suspect]
     Dosage: 20 UNITS OVER APPROX 13 HOURS
     Route: 042
  4. L-THYROXIN [Concomitant]
     Dosage: 125 ?G, DAILY
  5. OMEPRAZOLE [Concomitant]
     Dosage: 40 MG, DAILY
  6. SALMETEROL/FLUTICASONPROPIONAAT [Concomitant]
     Route: 055
  7. AZITHROMYCIN [Concomitant]
     Route: 055
  8. SALBUTAMOL [Concomitant]
     Route: 055
  9. TOBRAMYCIN [Concomitant]
     Dosage: UNK
     Route: 055
  10. ONDANSETRON [Concomitant]
     Dosage: 4 MG, UNK
     Route: 042
  11. BUPIVACAINE [Concomitant]
     Indication: ANAESTHESIA
     Route: 037
  12. MORPHINE [Concomitant]
     Indication: ANAESTHESIA
     Route: 037
  13. FENTANYL [Concomitant]
     Indication: ANAESTHESIA
     Route: 037
  14. PHENYLEPHRINE [Concomitant]
     Indication: BLOOD PRESSURE
     Route: 042

REACTIONS (2)
  - Hypoxia [Recovered/Resolved]
  - Sinus tachycardia [Recovered/Resolved]
